FAERS Safety Report 12046720 (Version 2)
Quarter: 2016Q3

REPORT INFORMATION
  Report Type: Spontaneous
  Country: FR (occurrence: FR)
  Receive Date: 20160209
  Receipt Date: 20160707
  Transmission Date: 20161109
  Serious: Yes (Life-Threatening, Hospitalization)
  Sender: FDA-Public Use
  Company Number: FR-PFIZER INC-2016061892

PATIENT
  Age: 14 Year
  Sex: Male
  Weight: 59 kg

DRUGS (9)
  1. ZOLOFT [Suspect]
     Active Substance: SERTRALINE HYDROCHLORIDE
     Dosage: 7 DF, SINGLE
     Route: 048
     Dates: start: 20151005, end: 20151005
  2. TETRALYSAL /00052901/ [Suspect]
     Active Substance: LYMECYCLINE
     Dosage: 3000 MG (10 TABLETS OF 300 MG), SINGLE
     Route: 048
     Dates: start: 20151005, end: 20151005
  3. SEDASPIR [Suspect]
     Active Substance: ASPIRIN\CAFFEINE\CODEINE
     Dosage: 6 DF, SINGLE
     Route: 048
     Dates: start: 20151005, end: 20151005
  4. TERCIAN /00759301/ [Concomitant]
     Active Substance: CYAMEMAZINE
  5. ALPRAZOLAM. [Suspect]
     Active Substance: ALPRAZOLAM
     Dosage: 17 DF, SINGLE
     Route: 048
     Dates: start: 20151005, end: 20151005
  6. IBUPROFEN. [Suspect]
     Active Substance: IBUPROFEN
     Dosage: 4000 MG (10 TABLETS OF 400 MG), SINGLE
     Route: 048
     Dates: start: 20151005, end: 20151005
  7. DOLIPRANE [Suspect]
     Active Substance: ACETAMINOPHEN
     Dosage: 40 G (16 TABLETS OF 1G + 48 TABLETS OF 500 MG), SINGLE
     Route: 048
     Dates: start: 20151005, end: 20151005
  8. ZALDIAR [Suspect]
     Active Substance: ACETAMINOPHEN\TRAMADOL HYDROCHLORIDE
     Dosage: 20 DF, SINGLE
     Route: 048
     Dates: start: 20151005, end: 20151005
  9. DAFLON /00426001/ [Suspect]
     Active Substance: DIOSMIN
     Dosage: 1500 MG (3 TABLETS OF 500 MG), SINGLE
     Route: 048
     Dates: start: 20151005, end: 20151005

REACTIONS (6)
  - Intentional overdose [Recovered/Resolved]
  - Somnolence [Recovered/Resolved]
  - Suicide attempt [Recovered/Resolved]
  - Headache [Recovered/Resolved]
  - Confusional state [Recovered/Resolved]
  - Abdominal pain upper [Recovered/Resolved]

NARRATIVE: CASE EVENT DATE: 20151005
